FAERS Safety Report 23138548 (Version 1)
Quarter: 2023Q4

REPORT INFORMATION
  Report Type: Spontaneous
  Country: DE (occurrence: DE)
  Receive Date: 20231102
  Receipt Date: 20231102
  Transmission Date: 20240110
  Serious: Yes (Other)
  Sender: FDA-Public Use
  Company Number: None

PATIENT
  Age: 31 Year
  Sex: Male

DRUGS (1)
  1. FINASTERIDE [Suspect]
     Active Substance: FINASTERIDE
     Indication: Alopecia
     Dosage: 6-12 MONTHS OF USE
     Route: 065
     Dates: start: 2014

REACTIONS (7)
  - Erectile dysfunction [Not Recovered/Not Resolved]
  - Impaired quality of life [Unknown]
  - Genital pain [Not Recovered/Not Resolved]
  - Genital atrophy [Not Recovered/Not Resolved]
  - Product communication issue [Unknown]
  - Depression [Not Recovered/Not Resolved]
  - Loss of libido [Not Recovered/Not Resolved]
